FAERS Safety Report 9740103 (Version 1)
Quarter: 2013Q4

REPORT INFORMATION
  Report Type: Spontaneous
  Country: DE (occurrence: DE)
  Receive Date: 20131209
  Receipt Date: 20131209
  Transmission Date: 20140711
  Serious: Yes (Other)
  Sender: FDA-Public Use
  Company Number: DE-GLAXOSMITHKLINE-D0082139A

PATIENT
  Sex: Female

DRUGS (1)
  1. REVOLADE [Suspect]
     Dosage: 100MG PER DAY
     Route: 048

REACTIONS (3)
  - Chronic lymphocytic leukaemia [Unknown]
  - Therapeutic response decreased [Unknown]
  - Immune system disorder [Unknown]
